FAERS Safety Report 4877481-2 (Version None)
Quarter: 2006Q1

REPORT INFORMATION
  Report Type: 
  Country: None (occurrence: None)
  Receive Date: 20060111
  Receipt Date: 20051220
  Transmission Date: 20060701
  Serious: Yes (Hospitalization)
  Sender: FDA-Public Use
  Company Number: US-SANOFI-SYNTHELABO-A03200504431

PATIENT
  Sex: Female
  Weight: 59 kg

DRUGS (8)
  1. PLAVIX [Suspect]
     Indication: DRUG USE FOR UNKNOWN INDICATION
     Route: 048
  2. REQUIP [Concomitant]
     Dosage: UNK
     Route: 048
  3. LABETOLOL [Concomitant]
     Dosage: UNK
     Route: 048
  4. DILTIAZEM HCL [Concomitant]
     Dosage: UNK
     Route: 048
  5. ZOLOFT [Concomitant]
     Dosage: UNK
     Route: 048
  6. ASPIRIN [Concomitant]
     Dosage: UNK
     Route: 048
  7. HYZAAR [Concomitant]
     Dosage: UNK
     Route: 048
  8. CARBIDOPA [Concomitant]
     Dosage: UNK
     Route: 048

REACTIONS (3)
  - CONTUSION [None]
  - DRUG INEFFECTIVE [None]
  - MYOCARDIAL INFARCTION [None]
